FAERS Safety Report 7625285-X (Version None)
Quarter: 2011Q3

REPORT INFORMATION
  Report Type: 
  Country: None (occurrence: None)
  Receive Date: 20110712
  Receipt Date: 20110524
  Transmission Date: 20111222
  Serious: Yes (Hospitalization, Other)
  Sender: FDA-Public Use
  Company Number: 2128643-2011-00023

PATIENT
  Age: 1 Month
  Sex: Male

DRUGS (1)
  1. WALGREENS GLYCERIN SUPPOSITORIES INFANT 12CT [Suspect]
     Indication: INFREQUENT BOWEL MOVEMENTS

REACTIONS (4)
  - FAECAL VOLUME INCREASED [None]
  - MALAISE [None]
  - PRODUCT SOLUBILITY ABNORMAL [None]
  - INTESTINAL OBSTRUCTION [None]
